FAERS Safety Report 18035460 (Version 1)
Quarter: 2020Q3

REPORT INFORMATION
  Report Type: Spontaneous
  Country: DE (occurrence: DE)
  Receive Date: 20200717
  Receipt Date: 20200717
  Transmission Date: 20201103
  Serious: Yes (Death, Other)
  Sender: FDA-Public Use
  Company Number: DE-TEVA-2020-DE-1800485

PATIENT
  Age: 46 Year
  Sex: Male
  Weight: 71 kg

DRUGS (6)
  1. RIBAVIRIN. [Suspect]
     Active Substance: RIBAVIRIN
     Indication: CHRONIC HEPATITIS C
     Dosage: 1200 MILLIGRAM DAILY;
     Route: 048
     Dates: start: 20170223, end: 20170614
  2. RILPIVIRINE [Concomitant]
     Active Substance: RILPIVIRINE
     Indication: HIV INFECTION
     Dosage: 25 MILLIGRAM DAILY;
  3. ABACAVIR. [Concomitant]
     Active Substance: ABACAVIR
     Indication: HIV INFECTION
     Dosage: 600 MILLIGRAM DAILY;
  4. DEXAGENT OPHTAL EYE DROPS [Concomitant]
     Dosage: LOCAL
     Dates: start: 20170311, end: 20170320
  5. ZEPATIER [Suspect]
     Active Substance: ELBASVIR\GRAZOPREVIR
     Indication: CHRONIC HEPATITIS C
     Dosage: 1 DOSAGE FORMS DAILY; 100MG/50MG
     Route: 048
     Dates: start: 20170223, end: 20170614
  6. LAMIVUDINE. [Concomitant]
     Active Substance: LAMIVUDINE
     Indication: HIV INFECTION
     Dosage: 300 MILLIGRAM DAILY;

REACTIONS (3)
  - Death [Fatal]
  - Ophthalmic herpes simplex [Recovered/Resolved]
  - Dry skin [Not Recovered/Not Resolved]

NARRATIVE: CASE EVENT DATE: 20170329
